FAERS Safety Report 18336242 (Version 2)
Quarter: 2020Q4

REPORT INFORMATION
  Report Type: Report from Study
  Country: US (occurrence: US)
  Receive Date: 20201001
  Receipt Date: 20201120
  Transmission Date: 20210113
  Serious: No
  Sender: FDA-Public Use
  Company Number: NVSC2020US263973

PATIENT

DRUGS (1)
  1. COSENTYX [Suspect]
     Active Substance: SECUKINUMAB
     Indication: ANKYLOSING SPONDYLITIS
     Dosage: 150 MG, QW(FOR 5 WEEKS THEN 150MG EVERY 4 WEEKS)
     Route: 058
     Dates: start: 20200826

REACTIONS (1)
  - Therapy non-responder [Unknown]
